FAERS Safety Report 25810130 (Version 1)
Quarter: 2025Q3

REPORT INFORMATION
  Report Type: Spontaneous
  Country: GB (occurrence: GB)
  Receive Date: 20250917
  Receipt Date: 20250917
  Transmission Date: 20251020
  Serious: Yes (Other)
  Sender: ACCORD
  Company Number: None

PATIENT
  Age: 52 Year
  Sex: Male
  Weight: 94 kg

DRUGS (4)
  1. FLUOXETINE [Suspect]
     Active Substance: FLUOXETINE HYDROCHLORIDE
     Indication: Product used for unknown indication
     Dates: start: 20250128, end: 20250425
  2. DIAZEPAM [Concomitant]
     Active Substance: DIAZEPAM
     Dates: start: 20250131, end: 20250315
  3. COCODAMOL [Concomitant]
     Active Substance: ACETAMINOPHEN\CODEINE PHOSPHATE
     Dates: start: 20250304, end: 20250402
  4. PROMETHAZINE HYDROCHLORIDE [Concomitant]
     Active Substance: PROMETHAZINE HYDROCHLORIDE
     Dates: start: 20250305, end: 20250417

REACTIONS (3)
  - Gingival bleeding [Recovering/Resolving]
  - Brain fog [Unknown]
  - Musculoskeletal stiffness [Unknown]
